FAERS Safety Report 17793887 (Version 2)
Quarter: 2020Q2

REPORT INFORMATION
  Report Type: Report from Study
  Country: GR (occurrence: GR)
  Receive Date: 20200515
  Receipt Date: 20200601
  Transmission Date: 20200714
  Serious: Yes (Hospitalization, Other)
  Sender: FDA-Public Use
  Company Number: GR-JNJFOC-20200511281

PATIENT
  Age: 19 Year
  Sex: Female
  Weight: 67 kg

DRUGS (6)
  1. ULTRA LEVURE [Concomitant]
     Active Substance: SACCHAROMYCES CEREVISIAE
     Dosage: 1X1
     Route: 065
     Dates: start: 202005
  2. UFEXIL                             /00697202/ [Concomitant]
     Dosage: 1X2
     Route: 065
     Dates: start: 202005
  3. REMICADE [Suspect]
     Active Substance: INFLIXIMAB
     Indication: CROHN^S DISEASE
     Route: 042
     Dates: start: 202002
  4. FLAGYL [Concomitant]
     Active Substance: METRONIDAZOLE\METRONIDAZOLE HYDROCHLORIDE
     Dosage: 1X3
     Route: 065
     Dates: start: 202005
  5. CLEXANE [Concomitant]
     Active Substance: ENOXAPARIN SODIUM
     Dosage: 4000 ANTI-XA IU/0.4ML 1X1
     Route: 065
     Dates: start: 202005
  6. T4 [Concomitant]
     Active Substance: LEVOTHYROXINE
     Dosage: 1X1

REACTIONS (2)
  - Intestinal perforation [Recovered/Resolved]
  - Inflammation [Recovered/Resolved]

NARRATIVE: CASE EVENT DATE: 2020
